FAERS Safety Report 7463500-6 (Version None)
Quarter: 2011Q2

REPORT INFORMATION
  Report Type: 
  Country: None (occurrence: None)
  Receive Date: 20110506
  Receipt Date: 20110503
  Transmission Date: 20111010
  Serious: Yes (Other)
  Sender: FDA-Public Use
  Company Number: PHHY2011ZA07088

PATIENT
  Age: 3 Year

DRUGS (2)
  1. TEGRETOL [Suspect]
  2. ERYTHROMYCIN [Interacting]

REACTIONS (3)
  - TOXICITY TO VARIOUS AGENTS [None]
  - CONVULSION [None]
  - DRUG INTERACTION [None]
